FAERS Safety Report 13974885 (Version 2)
Quarter: 2017Q4

REPORT INFORMATION
  Report Type: Spontaneous
  Country: JP (occurrence: JP)
  Receive Date: 20170915
  Receipt Date: 20171013
  Transmission Date: 20180321
  Serious: Yes (Hospitalization)
  Sender: FDA-Public Use
  Company Number: JP-DSJP-DSJ-2017-136627

PATIENT

DRUGS (6)
  1. LASIX [Concomitant]
     Active Substance: FUROSEMIDE
     Dosage: 30 MG, QD
     Route: 048
     Dates: start: 20140602
  2. ALDACTONE A [Concomitant]
     Active Substance: SPIRONOLACTONE
     Dosage: 12.5 MG, QD
     Route: 048
     Dates: start: 20140602
  3. LIXIANA TABLETS 30MG [Suspect]
     Active Substance: EDOXABAN TOSYLATE
     Indication: ATRIAL FIBRILLATION
     Dosage: 30 MG, QD
     Route: 048
     Dates: start: 20170213, end: 20170905
  4. LIXIANA TABLETS 30MG [Suspect]
     Active Substance: EDOXABAN TOSYLATE
     Indication: THROMBOSIS PROPHYLAXIS
  5. FAMOTIDINE. [Concomitant]
     Active Substance: FAMOTIDINE
     Dosage: 10 MG, QD
     Route: 048
     Dates: start: 20140602
  6. LANIRAPID [Concomitant]
     Active Substance: METILDIGOXIN
     Dosage: 0.05 MG, QD
     Route: 048
     Dates: start: 20140602

REACTIONS (2)
  - Drug-induced liver injury [Recovered/Resolved]
  - Jaundice [Recovered/Resolved]

NARRATIVE: CASE EVENT DATE: 20170902
